FAERS Safety Report 25020974 (Version 2)
Quarter: 2025Q1

REPORT INFORMATION
  Report Type: Spontaneous
  Country: JP (occurrence: JP)
  Receive Date: 20250227
  Receipt Date: 20250313
  Transmission Date: 20250409
  Serious: Yes (Hospitalization, Other)
  Sender: AMGEN
  Company Number: JP-KYOWAKIRIN-2025KK003101

PATIENT
  Age: 89 Year
  Sex: Male

DRUGS (2)
  1. DARBEPOETIN ALFA [Suspect]
     Active Substance: DARBEPOETIN ALFA
     Indication: Nephrogenic anaemia
     Dosage: 120 MICROGRAM, Q4WK
     Route: 058
     Dates: end: 20250131
  2. DARBEPOETIN ALFA [Suspect]
     Active Substance: DARBEPOETIN ALFA
     Dosage: 120 MICROGRAM, Q2WK
     Route: 058
     Dates: start: 2025

REACTIONS (4)
  - Hospitalisation [Unknown]
  - Cardiac failure [Unknown]
  - Pneumonia [Unknown]
  - Therapeutic product effect incomplete [Unknown]

NARRATIVE: CASE EVENT DATE: 20250201
